FAERS Safety Report 7166659-3 (Version None)
Quarter: 2010Q4

REPORT INFORMATION
  Report Type: 
  Country: None (occurrence: None)
  Receive Date: 20101203
  Receipt Date: 20101127
  Transmission Date: 20110411
  Serious: Yes (Death)
  Sender: FDA-Public Use
  Company Number: 2010US004617

PATIENT
  Age: 38 Year
  Sex: Male

DRUGS (10)
  1. PROGRAF [Suspect]
     Indication: STEM CELL TRANSPLANT
     Dosage: 1 MG, BID, ORAL
     Route: 048
     Dates: start: 20100709, end: 20100828
  2. PEPCID [Concomitant]
  3. DIFLUCAN [Concomitant]
  4. ZOVIRAX [Concomitant]
  5. LEXAPRO [Concomitant]
  6. LOTRIMIN [Concomitant]
  7. MARINOL [Concomitant]
  8. COMPAZINE [Concomitant]
  9. ATIVAN [Concomitant]
  10. LORTAB [Concomitant]

REACTIONS (2)
  - ACUTE LYMPHOCYTIC LEUKAEMIA [None]
  - MALIGNANT NEOPLASM PROGRESSION [None]
